FAERS Safety Report 4910035-8 (Version None)
Quarter: 2006Q1

REPORT INFORMATION
  Report Type: 
  Country: None (occurrence: None)
  Receive Date: 20060208
  Receipt Date: 20060203
  Transmission Date: 20060701
  Serious: Yes (Other)
  Sender: FDA-Public Use
  Company Number: 200610411GDS

PATIENT
  Age: 79 Year
  Sex: Female

DRUGS (7)
  1. AVELOX [Suspect]
     Dosage: 400 MG
  2. ACCUPRIL [Concomitant]
  3. DIABETA [Concomitant]
  4. HYDROCHLOROTHIAZIDE [Concomitant]
  5. METFORMIN [Concomitant]
  6. SYNTHROID [Concomitant]
  7. ZOPICLONE [Concomitant]

REACTIONS (2)
  - HYPOGLYCAEMIA [None]
  - LOSS OF CONSCIOUSNESS [None]
